FAERS Safety Report 4762667-8 (Version None)
Quarter: 2005Q3

REPORT INFORMATION
  Report Type: 
  Country: None (occurrence: None)
  Receive Date: 20050902
  Receipt Date: 20050802
  Transmission Date: 20060218
  Serious: Yes (Other)
  Sender: FDA-Public Use
  Company Number: 2005S1002772

PATIENT
  Age: 34 Year
  Sex: Male
  Weight: 136.0791 kg

DRUGS (2)
  1. FENTANYL [Suspect]
     Indication: PELVIC PAIN
     Dosage: 75 MCG/HR;Q3D;TDER ; 75 MCG/HR;QOD;TDER
     Dates: start: 20050402
  2. FENTANYL [Suspect]
     Indication: PROSTATITIS
     Dosage: 75 MCG/HR;Q3D;TDER ; 75 MCG/HR;QOD;TDER
     Dates: start: 20050402

REACTIONS (2)
  - DRUG EFFECT DECREASED [None]
  - DRUG EFFECT INCREASED [None]
